FAERS Safety Report 6376763-5 (Version None)
Quarter: 2009Q3

REPORT INFORMATION
  Report Type: 
  Country: None (occurrence: None)
  Receive Date: 20090924
  Receipt Date: 20090924
  Transmission Date: 20100115
  Serious: No
  Sender: FDA-Public Use
  Company Number: None

PATIENT
  Sex: Female
  Weight: 58.9676 kg

DRUGS (1)
  1. LORAZEPAM [Suspect]
     Indication: ANXIETY
     Dosage: 0.5MG 1-3 DAY
     Dates: start: 20090909

REACTIONS (5)
  - CHEST DISCOMFORT [None]
  - MUSCULAR WEAKNESS [None]
  - PRODUCT SUBSTITUTION ISSUE [None]
  - TINNITUS [None]
  - TREMOR [None]
